FAERS Safety Report 6947341-1 (Version None)
Quarter: 2010Q3

REPORT INFORMATION
  Report Type: 
  Country: None (occurrence: None)
  Receive Date: 20100827
  Receipt Date: 20090909
  Transmission Date: 20110219
  Serious: No
  Sender: FDA-Public Use
  Company Number: US-ABBOTT-09P-163-0596871-00

PATIENT
  Age: 75 Year
  Sex: Female
  Weight: 58.566 kg

DRUGS (1)
  1. NIASPAN [Suspect]
     Indication: BLOOD CHOLESTEROL INCREASED
     Route: 048
     Dates: start: 20090819

REACTIONS (2)
  - FLUSHING [None]
  - PRURITUS GENERALISED [None]
